FAERS Safety Report 24155074 (Version 1)
Quarter: 2024Q3

REPORT INFORMATION
  Report Type: Spontaneous
  Country: US (occurrence: US)
  Receive Date: 20240731
  Receipt Date: 20240731
  Transmission Date: 20241017
  Serious: No
  Sender: PHARMACOSMOS
  Company Number: US-NEBO-663186

PATIENT
  Age: 84 Year
  Sex: Female

DRUGS (9)
  1. ASPIRIN [Concomitant]
     Active Substance: ASPIRIN
  2. BUDESONIDE\FORMOTEROL [Concomitant]
     Active Substance: BUDESONIDE\FORMOTEROL
  3. ZYRTEC [Concomitant]
     Active Substance: CETIRIZINE HYDROCHLORIDE
  4. VITAMINS [Concomitant]
     Active Substance: VITAMINS
  5. MONOFERRIC [Suspect]
     Active Substance: FERRIC DERISOMALTOSE
     Indication: Product used for unknown indication
     Dates: start: 20240510, end: 20240510
  6. MONOFERRIC [Suspect]
     Active Substance: FERRIC DERISOMALTOSE
     Indication: Product used for unknown indication
     Dates: start: 20240510, end: 20240510
  7. FUROSEMIDE [Concomitant]
     Active Substance: FUROSEMIDE
  8. JARDIANCE [Concomitant]
     Active Substance: EMPAGLIFLOZIN
  9. ROFLUMILAST [Concomitant]
     Active Substance: ROFLUMILAST

REACTIONS (7)
  - Oxygen saturation decreased [Unknown]
  - Dyspnoea [Unknown]
  - Nausea [Unknown]
  - Blood pressure decreased [Unknown]
  - Asthenia [Unknown]
  - Tachycardia [Unknown]
  - Flushing [Unknown]

NARRATIVE: CASE EVENT DATE: 20240510
